FAERS Safety Report 5905896-X (Version None)
Quarter: 2008Q4

REPORT INFORMATION
  Report Type: 
  Country: None (occurrence: None)
  Receive Date: 20081001
  Receipt Date: 20081001
  Transmission Date: 20090506
  Serious: Yes (Other)
  Sender: FDA-Public Use
  Company Number: None

PATIENT
  Age: 64 Year
  Sex: Female
  Weight: 102.0593 kg

DRUGS (3)
  1. NEXIUM [Suspect]
     Indication: GASTRIC DISORDER
     Dosage: 40MG  ONCE A DAY PO
     Route: 048
     Dates: start: 20080924, end: 20080925
  2. NEXIUM [Suspect]
     Indication: GASTROOESOPHAGEAL REFLUX DISEASE
     Dosage: 40MG  ONCE A DAY PO
     Route: 048
     Dates: start: 20080924, end: 20080925
  3. NEXIUM [Suspect]
     Indication: HIATUS HERNIA
     Dosage: 40MG  ONCE A DAY PO
     Route: 048
     Dates: start: 20080924, end: 20080925

REACTIONS (3)
  - EYE SWELLING [None]
  - EYELID OEDEMA [None]
  - PRURITUS [None]
